FAERS Safety Report 4842382-2 (Version None)
Quarter: 2005Q4

REPORT INFORMATION
  Report Type: 
  Country: None (occurrence: None)
  Receive Date: 20051125
  Receipt Date: 20051117
  Transmission Date: 20060501
  Serious: Yes (Other)
  Sender: FDA-Public Use
  Company Number: 2005-CZ-01120

PATIENT
  Age: 33 Year
  Sex: Female

DRUGS (2)
  1. FLUOXETINE [Suspect]
     Indication: DEPRESSION
     Dosage: 20 MG, ORAL
     Route: 048
     Dates: start: 20050224, end: 20050901
  2. FLUOXETINE [Suspect]
     Indication: EATING DISORDER
     Dosage: 20 MG, ORAL
     Route: 048
     Dates: start: 20050224, end: 20050901

REACTIONS (1)
  - ALCOHOLISM [None]
